FAERS Safety Report 14402948 (Version 1)
Quarter: 2018Q1

REPORT INFORMATION
  Report Type: Report from Study
  Country: None (occurrence: ES)
  Receive Date: 20180117
  Receipt Date: 20180117
  Transmission Date: 20180509
  Serious: Yes (Hospitalization)
  Sender: FDA-Public Use
  Company Number: ES-ABBVIE-18S-144-2221703-00

PATIENT
  Age: 49 Year
  Sex: Male

DRUGS (2)
  1. VIEKIRAX [Suspect]
     Active Substance: OMBITASVIR\PARITAPREVIR\RITONAVIR
     Indication: HEPATITIS C RNA
     Dosage: 12,5 MG/ 75 MG/ 50 MG COMPRIM RECUBIERTOS CON PELICULA, 2 COMPRIMIDOS EN EL DESAYUNO
     Route: 048
     Dates: start: 20150626, end: 20150918
  2. EXVIERA [Suspect]
     Active Substance: DASABUVIR
     Indication: HEPATITIS C RNA
     Dosage: 250 MG COMPRIMIDOS RECUBIERTOS CON PELICULA, 1 COMPRIMIDO CADA 12 HORAS
     Route: 048
     Dates: start: 20150626, end: 20150918

REACTIONS (1)
  - Lower respiratory tract infection [Recovered/Resolved]

NARRATIVE: CASE EVENT DATE: 20160111
